FAERS Safety Report 7493077-0 (Version None)
Quarter: 2011Q2

REPORT INFORMATION
  Report Type: 
  Country: None (occurrence: None)
  Receive Date: 20110520
  Receipt Date: 20110516
  Transmission Date: 20111010
  Serious: Yes (Other)
  Sender: FDA-Public Use
  Company Number: US-PFIZER INC-2011105028

PATIENT
  Age: 39 Year
  Sex: Male
  Weight: 70.748 kg

DRUGS (3)
  1. LEVETIRACETAM [Concomitant]
     Dosage: UNK
  2. DILANTIN [Suspect]
     Indication: CONVULSION
     Dosage: 200MG IN THE MORNING 100MG IN THE NIGHT
     Route: 048
     Dates: start: 19790101
  3. LACOSAMIDE [Concomitant]
     Dosage: UNK

REACTIONS (2)
  - GRAND MAL CONVULSION [None]
  - CONVULSION [None]
